FAERS Safety Report 4778041-4 (Version None)
Quarter: 2005Q3

REPORT INFORMATION
  Report Type: 
  Country: None (occurrence: None)
  Receive Date: 20050923
  Receipt Date: 20050909
  Transmission Date: 20060218
  Serious: Yes (Disabling)
  Sender: FDA-Public Use
  Company Number: 2005S1006823

PATIENT
  Age: 44 Year
  Sex: Male
  Weight: 54.4316 kg

DRUGS (6)
  1. FENTANYL [Suspect]
     Indication: PAIN
     Dosage: 50 MCG/HR;Q3D;TDER
     Route: 062
  2. FENTANYL [Suspect]
     Indication: PAIN
     Dosage: 50 MCG;Q3D;TDER
     Route: 062
     Dates: start: 20050601
  3. METHYLPREDNISOLONE [Concomitant]
  4. CLONAZEPAM [Concomitant]
  5. PARACETAMOL/HYDROCODONE [Concomitant]
  6. BITARTRATE [Concomitant]

REACTIONS (6)
  - APPLICATION SITE ERYTHEMA [None]
  - APPLICATION SITE IRRITATION [None]
  - DRUG WITHDRAWAL SYNDROME [None]
  - IMPAIRED WORK ABILITY [None]
  - INADEQUATE ANALGESIA [None]
  - MEDICAL DEVICE COMPLICATION [None]
